FAERS Safety Report 4361451-7 (Version None)
Quarter: 2004Q2

REPORT INFORMATION
  Report Type: 
  Country: None (occurrence: None)
  Receive Date: 20040521
  Receipt Date: 20030603
  Transmission Date: 20050107
  Serious: Yes (Hospitalization, Other)
  Sender: FDA-Public Use
  Company Number: US-GLAXOSMITHKLINE-A0410772A

PATIENT
  Age: 24 Year
  Sex: Female
  Weight: 47.7 kg

DRUGS (2)
  1. ZYBAN [Suspect]
     Dosage: 150MG TWICE PER DAY
     Route: 048
     Dates: start: 20030404, end: 20030411
  2. ANTIBIOTIC [Concomitant]

REACTIONS (3)
  - ANAPHYLACTIC REACTION [None]
  - CONVULSION [None]
  - DRUG INEFFECTIVE [None]
